FAERS Safety Report 6796199-2 (Version None)
Quarter: 2010Q2

REPORT INFORMATION
  Report Type: 
  Country: None (occurrence: None)
  Receive Date: 20100625
  Receipt Date: 20100615
  Transmission Date: 20101027
  Serious: Yes (Hospitalization)
  Sender: FDA-Public Use
  Company Number: IT-ABBOTT-10P-083-0636776-00

PATIENT
  Sex: Female

DRUGS (2)
  1. CLARITHROMYCIN [Suspect]
     Indication: DENTAL OPERATION
     Route: 048
     Dates: start: 20100318, end: 20100318
  2. IBUPROFEN TABLETS [Suspect]
     Indication: DENTAL OPERATION
     Route: 048
     Dates: start: 20100318, end: 20100318

REACTIONS (2)
  - SWELLING FACE [None]
  - URTICARIA [None]
